FAERS Safety Report 7547252-7 (Version None)
Quarter: 2011Q2

REPORT INFORMATION
  Report Type: 
  Country: None (occurrence: None)
  Receive Date: 20110614
  Receipt Date: 20110518
  Transmission Date: 20111010
  Serious: Yes (Hospitalization, Other)
  Sender: FDA-Public Use
  Company Number: PHHY2011FR41057

PATIENT
  Age: 81 Year
  Sex: Male

DRUGS (3)
  1. RASILEZ [Suspect]
     Indication: HYPERTENSION
     Dosage: 300 MG, UNK
     Route: 048
     Dates: start: 20100501, end: 20100601
  2. LASIX [Concomitant]
  3. CORDARONE [Concomitant]

REACTIONS (4)
  - RENAL FAILURE [None]
  - CARDIAC FAILURE [None]
  - EJECTION FRACTION DECREASED [None]
  - BLOOD CREATININE INCREASED [None]
